FAERS Safety Report 8632048 (Version 2)
Quarter: 2013Q3

REPORT INFORMATION
  Report Type: Report from Study
  Country: MX (occurrence: MX)
  Receive Date: 20120625
  Receipt Date: 20130723
  Transmission Date: 20140515
  Serious: Yes (Other)
  Sender: FDA-Public Use
  Company Number: PHHY2012MX053449

PATIENT
  Age: 38 Year
  Sex: Male
  Weight: 82 kg

DRUGS (2)
  1. GLIVEC [Suspect]
     Indication: CHRONIC MYELOID LEUKAEMIA
     Dosage: 600 MG, UNK
     Route: 048
     Dates: start: 20070102
  2. GLIVEC [Suspect]
     Dosage: 600 MG, UNK
     Route: 048
     Dates: start: 20120306

REACTIONS (3)
  - Intervertebral disc protrusion [Unknown]
  - Chronic myeloid leukaemia [Unknown]
  - Blood pressure decreased [Unknown]
